FAERS Safety Report 5142227-X (Version None)
Quarter: 2006Q4

REPORT INFORMATION
  Report Type: 
  Country: None (occurrence: None)
  Receive Date: 20061030
  Receipt Date: 20061030
  Transmission Date: 20070319
  Serious: Yes (Hospitalization, Disabling)
  Sender: FDA-Public Use
  Company Number: None

PATIENT
  Age: 15 Year
  Sex: Female
  Weight: 50.8029 kg

DRUGS (1)
  1. COMPAZINE [Suspect]
     Indication: MIGRAINE
     Dosage: ?     1X     UNK

REACTIONS (5)
  - AGITATION [None]
  - DISCOMFORT [None]
  - DYSPNOEA [None]
  - FACIAL SPASM [None]
  - MUSCLE SPASMS [None]
